APPROVED DRUG PRODUCT: BENAZEPRIL HYDROCHLORIDE
Active Ingredient: BENAZEPRIL HYDROCHLORIDE
Strength: 10MG
Dosage Form/Route: TABLET;ORAL
Application: A078212 | Product #001 | TE Code: AB
Applicant: AUROBINDO PHARMA LTD
Approved: May 22, 2008 | RLD: No | RS: No | Type: RX